FAERS Safety Report 11109384 (Version 1)
Quarter: 2015Q2

REPORT INFORMATION
  Report Type: Spontaneous
  Country: CO (occurrence: CO)
  Receive Date: 20150513
  Receipt Date: 20150513
  Transmission Date: 20150821
  Serious: Yes (Life-Threatening, Hospitalization)
  Sender: FDA-Public Use
  Company Number: CO-MALLINCKRODT-T201502450

PATIENT
  Age: 62 Year
  Sex: Female
  Weight: 70 kg

DRUGS (2)
  1. OPTIRAY [Suspect]
     Active Substance: IOVERSOL
     Indication: CATHETERISATION CARDIAC
     Dosage: 110 ML, SINGLE
     Route: 013
     Dates: start: 20150428, end: 20150428
  2. OPTIRAY [Suspect]
     Active Substance: IOVERSOL
     Indication: CORONARY ANGIOPLASTY

REACTIONS (5)
  - Rash [Recovered/Resolved]
  - Paraesthesia [Recovered/Resolved]
  - Feeling cold [Recovered/Resolved]
  - Oxygen saturation decreased [Recovered/Resolved]
  - Eyelid oedema [Recovering/Resolving]

NARRATIVE: CASE EVENT DATE: 20150428
